FAERS Safety Report 5756826-5 (Version None)
Quarter: 2008Q2

REPORT INFORMATION
  Report Type: 
  Country: None (occurrence: None)
  Receive Date: 20080603
  Receipt Date: 20080530
  Transmission Date: 20081010
  Serious: Yes (Death)
  Sender: FDA-Public Use
  Company Number: JP-NOVOPROD-275783

PATIENT
  Age: 2 Year
  Sex: Female

DRUGS (1)
  1. NOVOSEVEN [Suspect]
     Indication: HAEMORRHAGE
     Dosage: UNK, UNK
     Route: 042

REACTIONS (1)
  - MULTI-ORGAN FAILURE [None]
